FAERS Safety Report 15142876 (Version 1)
Quarter: 2018Q3

REPORT INFORMATION
  Report Type: Spontaneous
  Country: US (occurrence: US)
  Receive Date: 20180618
  Receipt Date: 20180618
  Transmission Date: 20181010
  Serious: Yes (Disabling, Other)
  Sender: FDA-Public Use
  Company Number: None

PATIENT
  Age: 58 Year
  Sex: Male
  Weight: 81 kg

DRUGS (4)
  1. DIAL WHITE [Suspect]
     Active Substance: TRICLOCARBAN
     Indication: POSTOPERATIVE CARE
     Dosage: ?          QUANTITY:1 BAR OF SOAP;?
     Route: 061
     Dates: start: 20160915, end: 20180522
  2. DIAL WHITE [Suspect]
     Active Substance: TRICLOCARBAN
     Indication: SURGERY
     Dosage: ?          QUANTITY:1 BAR OF SOAP;?
     Route: 061
     Dates: start: 20160915, end: 20180522
  3. ALBUTEROL. [Concomitant]
     Active Substance: ALBUTEROL
  4. MULTIVITAMIN [Concomitant]
     Active Substance: VITAMINS

REACTIONS (6)
  - Skin hypopigmentation [None]
  - Product quality issue [None]
  - Product use issue [None]
  - Alopecia [None]
  - Ocular hyperaemia [None]
  - Hypotrichosis [None]

NARRATIVE: CASE EVENT DATE: 20180509
